FAERS Safety Report 17090986 (Version 1)
Quarter: 2019Q4

REPORT INFORMATION
  Report Type: Spontaneous
  Country: US (occurrence: US)
  Receive Date: 20191031
  Receipt Date: 20191031
  Transmission Date: 20200122
  Serious: No
  Sender: FDA-Public Use
  Company Number: None

PATIENT
  Age: 93 Year
  Sex: Male
  Weight: 95.71 kg

DRUGS (1)
  1. TAMSULOSIN [Suspect]
     Active Substance: TAMSULOSIN
     Route: 048
     Dates: start: 20190116, end: 20190801

REACTIONS (3)
  - Eye pruritus [None]
  - Rhinorrhoea [None]
  - Rhinitis [None]

NARRATIVE: CASE EVENT DATE: 20190801
